FAERS Safety Report 5367555-4 (Version None)
Quarter: 2007Q2

REPORT INFORMATION
  Report Type: 
  Country: None (occurrence: None)
  Receive Date: 20070622
  Receipt Date: 20061120
  Transmission Date: 20071010
  Serious: No
  Sender: FDA-Public Use
  Company Number: US-ASTRAZENECA-2006UW25742

PATIENT
  Age: 6 Year
  Sex: Male
  Weight: 41.7 kg

DRUGS (2)
  1. PULMICORT RESPULES [Suspect]
     Route: 055
  2. ALBUTEROL [Concomitant]

REACTIONS (2)
  - VOMITING [None]
  - WEIGHT INCREASED [None]
